FAERS Safety Report 7539688-5 (Version None)
Quarter: 2011Q2

REPORT INFORMATION
  Report Type: 
  Country: None (occurrence: None)
  Receive Date: 20110610
  Receipt Date: 20110527
  Transmission Date: 20111010
  Serious: Yes (Hospitalization)
  Sender: FDA-Public Use
  Company Number: US-JNJFOC-20110600233

PATIENT
  Sex: Female
  Weight: 12.7 kg

DRUGS (7)
  1. LEUKINE [Concomitant]
     Indication: INFLAMMATORY BOWEL DISEASE
  2. PREVACID [Concomitant]
  3. IRON SULFATETHIAMIN COMPOUND TAB [Concomitant]
  4. ALBUTEROL SULFATE AUTOHALER [Concomitant]
  5. FLUCONAZOLE [Concomitant]
  6. LEUKINE [Concomitant]
     Dates: start: 20100222, end: 20100710
  7. REMICADE [Suspect]
     Indication: INFLAMMATORY BOWEL DISEASE
     Route: 042
     Dates: start: 20090905, end: 20091015

REACTIONS (3)
  - PSEUDOMONAS INFECTION [None]
  - MEDICAL DEVICE COMPLICATION [None]
  - BONE MARROW TRANSPLANT [None]
